FAERS Safety Report 5099775-0 (Version None)
Quarter: 2006Q3

REPORT INFORMATION
  Report Type: 
  Country: None (occurrence: None)
  Receive Date: 20060906
  Receipt Date: 20060822
  Transmission Date: 20061208
  Serious: Yes (Hospitalization, Other)
  Sender: FDA-Public Use
  Company Number: 2005037260

PATIENT
  Age: 78 Year
  Sex: Female

DRUGS (13)
  1. ATARAX [Suspect]
     Indication: DRUG USE FOR UNKNOWN INDICATION
     Dosage: 25 MG (25 MG, 1 IN 1 D), ORAL
     Route: 048
     Dates: start: 20040810
  2. KETOPROFEN [Suspect]
     Indication: FEMUR FRACTURE
     Dosage: 50 MG (50 MG, 1 IN 1 D), ORAL
     Route: 048
     Dates: start: 20040808, end: 20040817
  3. ACETAMINOPHEN [Suspect]
     Indication: FEMUR FRACTURE
     Dosage: 3 GRAM (3 GRAM, 1 IN 1 D), ORAL
     Route: 048
     Dates: start: 20040807
  4. PANTOPRAZOLE SODIUM [Suspect]
     Indication: MELAENA
     Dosage: 40 (40 MG, 1 IN 1 D), ORAL
     Route: 048
     Dates: start: 20040714
  5. FOLIC ACID [Suspect]
     Indication: DRUG USE FOR UNKNOWN INDICATION
     Dosage: 10 MG (10 MG, 1 IN 1 D), ORAL
     Route: 048
     Dates: start: 20040710
  6. AMOXICILLIN + CLAVULANATE POTASSIUM [Suspect]
     Indication: PYREXIA
     Dosage: 3 GRAM (3 GRAM, 1 IN 1 D), ORAL
     Route: 048
     Dates: start: 20040716, end: 20040725
  7. EQUANIL [Concomitant]
  8. VITAMIN B1 TAB [Concomitant]
  9. VITAMIN B6 (VITAMIN B6) [Concomitant]
  10. TRANXENE [Concomitant]
  11. ANEXATE (FLUMAZENIL) [Concomitant]
  12. TERCIAN (CYAMEMAZINE) [Concomitant]
  13. LOVENOX [Concomitant]

REACTIONS (5)
  - DEMENTIA [None]
  - FALL [None]
  - FEMUR FRACTURE [None]
  - HEPATITIS CHOLESTATIC [None]
  - OVERDOSE [None]
